FAERS Safety Report 9765025 (Version 1)
Quarter: 2013Q4

REPORT INFORMATION
  Report Type: Spontaneous
  Country: US (occurrence: None)
  Receive Date: 20131216
  Receipt Date: 20131216
  Transmission Date: 20140711
  Serious: Yes (Other)
  Sender: FDA-Public Use
  Company Number: None

PATIENT
  Age: 73 Year
  Sex: Female
  Weight: 58.97 kg

DRUGS (10)
  1. LEVOFLOXACIN [Suspect]
     Indication: OROPHARYNGEAL PAIN
     Route: 048
     Dates: start: 20131210, end: 20131210
  2. LEVOFLOXACIN [Suspect]
     Indication: INCREASED UPPER AIRWAY SECRETION
     Route: 048
     Dates: start: 20131210, end: 20131210
  3. LEVOFLOXACIN [Suspect]
     Indication: COUGH
     Route: 048
     Dates: start: 20131210, end: 20131210
  4. LEVOFLOXACIN [Suspect]
     Indication: RHINORRHOEA
     Route: 048
     Dates: start: 20131210, end: 20131210
  5. LOTHYROXINE [Concomitant]
  6. VERAPANIL SR [Concomitant]
  7. HCT [Concomitant]
  8. COZAAR [Concomitant]
  9. PLAVIX [Concomitant]
  10. ZOCAR [Concomitant]

REACTIONS (3)
  - Abasia [None]
  - Tendon pain [None]
  - Musculoskeletal stiffness [None]
